FAERS Safety Report 10922872 (Version 1)
Quarter: 2015Q1

REPORT INFORMATION
  Report Type: Spontaneous
  Country: US (occurrence: None)
  Receive Date: 20150313
  Receipt Date: 20150313
  Transmission Date: 20150721
  Serious: Yes (Life-Threatening, Hospitalization)
  Sender: FDA-Public Use
  Company Number: POI0581201500006

PATIENT
  Sex: Male
  Weight: 3.12 kg

DRUGS (2)
  1. METHYLPREDNISOLONE (METHYLPREDNISOLONE) [Suspect]
     Active Substance: METHYLPREDNISOLONE
     Indication: AUTOIMMUNE HEPATITIS
     Dosage: (7.5 MG)
     Route: 048
  2. AZATHIOPRINE (AZATHIOPRINE) [Suspect]
     Active Substance: AZATHIOPRINE
     Indication: AUTOIMMUNE HEPATITIS
     Dosage: (100 MG)
     Route: 048

REACTIONS (5)
  - Caesarean section [None]
  - Neonatal intestinal perforation [None]
  - Meconium cyst [None]
  - Foetal exposure during pregnancy [None]
  - Meconium peritonitis [None]

NARRATIVE: CASE EVENT DATE: 2014
